FAERS Safety Report 25855895 (Version 1)
Quarter: 2025Q3

REPORT INFORMATION
  Report Type: Spontaneous
  Country: US (occurrence: US)
  Receive Date: 20250928
  Receipt Date: 20250928
  Transmission Date: 20251020
  Serious: Yes (Hospitalization, Other)
  Sender: ALEXION PHARMACEUTICALS
  Company Number: US-AstraZeneca-CH-00958062A

PATIENT
  Sex: Female
  Weight: 81 kg

DRUGS (2)
  1. FASENRA [Suspect]
     Active Substance: BENRALIZUMAB
     Indication: Asthma
     Dosage: 30 MILLIGRAM PER MILLILITRE, Q8W
  2. FASENRA [Suspect]
     Active Substance: BENRALIZUMAB

REACTIONS (4)
  - Asthma [Unknown]
  - Hypoxia [Recovered/Resolved]
  - Bronchospasm [Recovering/Resolving]
  - Nail hypertrophy [Recovering/Resolving]

NARRATIVE: CASE EVENT DATE: 20250101
